FAERS Safety Report 13958244 (Version 1)
Quarter: 2017Q3

REPORT INFORMATION
  Report Type: Report from Study
  Country: AU (occurrence: AU)
  Receive Date: 20170912
  Receipt Date: 20170912
  Transmission Date: 20171128
  Serious: Yes (Death)
  Sender: FDA-Public Use
  Company Number: AU-VISTAPHARM, INC.-VER201709-000533

PATIENT
  Age: 46 Year
  Sex: Female

DRUGS (5)
  1. 7-AMINONITRAZEPAM [Suspect]
     Active Substance: 7-AMINONITRAZEPAM
  2. DULOXETINE. [Suspect]
     Active Substance: DULOXETINE
     Indication: DEPRESSION
  3. ALPRAZOLAM. [Suspect]
     Active Substance: ALPRAZOLAM
  4. METHADONE [Suspect]
     Active Substance: METHADONE HYDROCHLORIDE
  5. QUETIPINE [Suspect]
     Active Substance: QUETIAPINE

REACTIONS (2)
  - Toxicity to various agents [Fatal]
  - Drug interaction [Fatal]
